FAERS Safety Report 9416881 (Version 1)
Quarter: 2013Q3

REPORT INFORMATION
  Report Type: Spontaneous
  Country: US (occurrence: None)
  Receive Date: 20130719
  Receipt Date: 20130719
  Transmission Date: 20140515
  Serious: Yes (Death, Hospitalization, Other)
  Sender: FDA-Public Use
  Company Number: 2013US0297

PATIENT
  Age: 29 Year
  Sex: Female

DRUGS (2)
  1. ANAKINRA [Suspect]
     Indication: STILL^S DISEASE ADULT ONSET
     Dosage: 100 MG, 1 IN 1 D
  2. PREDNISONE [Concomitant]

REACTIONS (17)
  - Fatigue [None]
  - Hypotension [None]
  - Dyspnoea [None]
  - Pyrexia [None]
  - Arthritis [None]
  - Abdominal pain [None]
  - Chills [None]
  - Nausea [None]
  - Vomiting [None]
  - Epigastric discomfort [None]
  - Oedema peripheral [None]
  - Sinus tachycardia [None]
  - Metabolic acidosis [None]
  - Cardiopulmonary failure [None]
  - Acute respiratory distress syndrome [None]
  - Electrocardiogram PR shortened [None]
  - Electrocardiogram T wave abnormal [None]
